FAERS Safety Report 18714243 (Version 25)
Quarter: 2025Q2

REPORT INFORMATION
  Report Type: Report from Study
  Country: CO (occurrence: CO)
  Receive Date: 20210107
  Receipt Date: 20250610
  Transmission Date: 20250717
  Serious: Yes (Other)
  Sender: TAKEDA
  Company Number: CO-TAKEDA-2021TUS000680

PATIENT
  Age: 29 Year
  Sex: Male
  Weight: 70 kg

DRUGS (6)
  1. VEDOLIZUMAB [Suspect]
     Active Substance: VEDOLIZUMAB
     Indication: Colitis ulcerative
  2. VEDOLIZUMAB [Suspect]
     Active Substance: VEDOLIZUMAB
  3. MESALAMINE [Suspect]
     Active Substance: MESALAMINE
     Indication: Product used for unknown indication
     Dosage: 2 GRAM, Q12H
  4. PREDNISOLONE [Concomitant]
     Active Substance: PREDNISOLONE
  5. AZATHIOPRINE [Concomitant]
     Active Substance: AZATHIOPRINE
  6. SOLUBLE FIBER [Concomitant]
     Active Substance: METHYLCELLULOSE (4000 CPS)
     Indication: Constipation
     Dosage: UNK UNK, Q2WEEKS

REACTIONS (31)
  - Cushing^s syndrome [Unknown]
  - Varicella [Not Recovered/Not Resolved]
  - Haematochezia [Unknown]
  - Nasal dryness [Recovering/Resolving]
  - Influenza [Recovering/Resolving]
  - Weight increased [Unknown]
  - Toothache [Recovered/Resolved]
  - Lactose intolerance [Unknown]
  - Chronic gastritis [Unknown]
  - Irritable bowel syndrome [Unknown]
  - Overweight [Unknown]
  - Gastrooesophageal reflux disease [Unknown]
  - Malaise [Recovering/Resolving]
  - Pyrexia [Recovered/Resolved]
  - Diarrhoea [Unknown]
  - Rectal fissure [Unknown]
  - Weight decreased [Unknown]
  - Pain [Recovering/Resolving]
  - Frequent bowel movements [Recovered/Resolved]
  - Faeces soft [Recovered/Resolved]
  - Abdominal discomfort [Recovered/Resolved]
  - Respiratory symptom [Recovering/Resolving]
  - Throat irritation [Recovering/Resolving]
  - Stomatitis [Not Recovered/Not Resolved]
  - Productive cough [Recovering/Resolving]
  - Drug ineffective [Unknown]
  - Mouth ulceration [Not Recovered/Not Resolved]
  - Abdominal pain [Recovered/Resolved]
  - Nasal congestion [Recovering/Resolving]
  - Headache [Recovering/Resolving]
  - Cough [Recovering/Resolving]

NARRATIVE: CASE EVENT DATE: 20201231
